FAERS Safety Report 7883895-9 (Version None)
Quarter: 2011Q4

REPORT INFORMATION
  Report Type: 
  Country: None (occurrence: None)
  Receive Date: 20111102
  Receipt Date: 20111028
  Transmission Date: 20120403
  Serious: Yes (Hospitalization)
  Sender: FDA-Public Use
  Company Number: US-BRACCO-007053

PATIENT
  Age: 82 Year
  Sex: Male
  Weight: 89 kg

DRUGS (6)
  1. PROPRANOLOL [Concomitant]
  2. MULTIHANCE [Suspect]
     Indication: NUCLEAR MAGNETIC RESONANCE IMAGING BRAIN
     Route: 042
     Dates: start: 20111027, end: 20111027
  3. MULTIHANCE [Suspect]
     Indication: LUNG NEOPLASM MALIGNANT
     Route: 042
     Dates: start: 20111027, end: 20111027
  4. MARINOL [Concomitant]
  5. CRESTOR [Concomitant]
  6. ALPRAZOLAM [Concomitant]

REACTIONS (3)
  - MALAISE [None]
  - PULSE ABSENT [None]
  - DYSPNOEA [None]
